FAERS Safety Report 22355761 (Version 1)
Quarter: 2023Q2

REPORT INFORMATION
  Report Type: Spontaneous
  Country: PH (occurrence: PH)
  Receive Date: 20230523
  Receipt Date: 20230523
  Transmission Date: 20230721
  Serious: Yes (Other)
  Sender: FDA-Public Use
  Company Number: PH-SUN PHARMACEUTICAL INDUSTRIES LTD-2023R1-388555

PATIENT
  Sex: Female
  Weight: 43 kg

DRUGS (4)
  1. NIFEDIPINE [Suspect]
     Active Substance: NIFEDIPINE
     Indication: Premature labour
     Dosage: UNK (30 MG)
     Route: 065
  2. NIFEDIPINE [Suspect]
     Active Substance: NIFEDIPINE
     Dosage: UNK (10 MG EVERY 4 HOURS)
     Route: 065
  3. BUPIVACAINE [Suspect]
     Active Substance: BUPIVACAINE
     Indication: Product used for unknown indication
     Dosage: UNK
     Route: 065
  4. DEXAMETHASONE [Suspect]
     Active Substance: DEXAMETHASONE
     Indication: Premature labour
     Dosage: 6 MILLIGRAM, BID (EVERY 12 HOURS)
     Route: 030

REACTIONS (3)
  - Exposure during pregnancy [Unknown]
  - Premature delivery [Unknown]
  - Drug ineffective [Unknown]
